FAERS Safety Report 5678891-6 (Version None)
Quarter: 2008Q1

REPORT INFORMATION
  Report Type: 
  Country: None (occurrence: None)
  Receive Date: 20080325
  Receipt Date: 20080319
  Transmission Date: 20080703
  Serious: Yes (Life-Threatening)
  Sender: FDA-Public Use
  Company Number: GB-AVENTIS-200812523GDDC

PATIENT
  Age: 74 Year
  Sex: Female
  Weight: 68 kg

DRUGS (3)
  1. METRONIDAZOLE HCL [Suspect]
     Indication: TOOTH ABSCESS
     Dosage: DOSE: UNK
     Route: 048
     Dates: start: 20070619, end: 20070619
  2. AMOXICILLIN [Concomitant]
     Indication: DENTAL DISCOMFORT
     Dosage: DOSE: UNK
     Dates: start: 20070619
  3. IBUPROFEN [Concomitant]
     Indication: DENTAL DISCOMFORT
     Dosage: DOSE: UNK
     Dates: start: 20070619

REACTIONS (1)
  - ANAPHYLACTIC REACTION [None]
